FAERS Safety Report 11094149 (Version 1)
Quarter: 2015Q2

REPORT INFORMATION
  Report Type: Spontaneous
  Country: US (occurrence: None)
  Receive Date: 20150428
  Receipt Date: 20150428
  Transmission Date: 20150821
  Serious: Yes (Hospitalization)
  Sender: FDA-Public Use
  Company Number: PHEH2014US018367

PATIENT
  Age: 39 Year
  Sex: Female
  Weight: 93 kg

DRUGS (6)
  1. GLUCOSAMINE [Concomitant]
     Active Substance: GLUCOSAMINE
  2. ESCITALOPRAM OXALATE. [Concomitant]
     Active Substance: ESCITALOPRAM OXALATE
  3. VITAMIN D3 [Concomitant]
     Active Substance: CHOLECALCIFEROL
  4. MULTI VIT (ASCORBIC ACID, CHROMIUM, COPPER, FOLIC ACID, INOSITOL, MAGNESIUM, MANGANESE, NICOTINAMIDE, PANTOTHENIC ACID, POTASSIUM, PYRIDOXINE, HYDROCHLORIDE, RETINOL, RIBOFLAVIN, SELENIUM, VITAMIN B1 NOS, VITAMIN B1 NOS, VITAMIN B12 NOS, VITAMNIN E NOS)? [Concomitant]
  5. FISH OIL [Concomitant]
     Active Substance: FISH OIL
  6. GILENYA [Suspect]
     Active Substance: FINGOLIMOD HYDROCHLORIDE
     Indication: RELAPSING-REMITTING MULTIPLE SCLEROSIS
     Route: 048
     Dates: start: 20140829, end: 20140902

REACTIONS (5)
  - Bradycardia [None]
  - Electrocardiogram PR prolongation [None]
  - Electrocardiogram QT prolonged [None]
  - Dyspnoea [None]
  - Head discomfort [None]

NARRATIVE: CASE EVENT DATE: 20140829
